FAERS Safety Report 16882526 (Version 1)
Quarter: 2019Q4

REPORT INFORMATION
  Report Type: Spontaneous
  Country: US (occurrence: US)
  Receive Date: 20191003
  Receipt Date: 20191003
  Transmission Date: 20200122
  Serious: No
  Sender: FDA-Public Use
  Company Number: US-TEIKOKU PHARMA USA-TPU2019-00665

PATIENT
  Age: 59 Year
  Sex: Female

DRUGS (8)
  1. HYDROCODONE BITARTRATE APAP [Concomitant]
     Indication: NEUROPATHY PERIPHERAL
     Dosage: 10/325
     Dates: start: 2003
  2. MINIVILLE [Concomitant]
     Indication: HORMONE REPLACEMENT THERAPY
     Dosage: 0.1 MG PER PATCH
  3. FLEXIRILL [Concomitant]
     Indication: INTERVERTEBRAL DISC DEGENERATION
     Dates: start: 1979
  4. LIDOCAINE PATCH [Suspect]
     Active Substance: LIDOCAINE
     Indication: PAIN
     Route: 061
     Dates: start: 2005
  5. PRISTIQ EXTENDED-RELEASE [Concomitant]
     Active Substance: DESVENLAFAXINE SUCCINATE
     Indication: CRYING
     Dates: start: 2007
  6. VALTREX [Concomitant]
     Active Substance: VALACYCLOVIR HYDROCHLORIDE
     Indication: RASH
     Dosage: AS NEEDED 4 TIMES A MONTH
  7. LYRICA [Concomitant]
     Active Substance: PREGABALIN
     Indication: NEURALGIA
     Dates: start: 2011
  8. MAXALT [Concomitant]
     Active Substance: RIZATRIPTAN BENZOATE
     Dosage: MELT IN MOUTH
     Dates: start: 2000

REACTIONS (2)
  - Therapeutic product effect incomplete [Unknown]
  - Inappropriate schedule of product administration [Unknown]

NARRATIVE: CASE EVENT DATE: 201907
